FAERS Safety Report 15839123 (Version 4)
Quarter: 2019Q3

REPORT INFORMATION
  Report Type: Report from Study
  Country: US (occurrence: US)
  Receive Date: 20190117
  Receipt Date: 20190722
  Transmission Date: 20191004
  Serious: Yes (Death, Life-Threatening, Hospitalization, Other)
  Sender: FDA-Public Use
  Company Number: US-MYLANLABS-2018M1091264

PATIENT
  Age: 37 Year
  Sex: Male
  Weight: 68.44 kg

DRUGS (117)
  1. VORICONAZOLE. [Suspect]
     Active Substance: VORICONAZOLE
     Dosage: 260 MG, Q12H
     Route: 042
     Dates: start: 20171213, end: 20180102
  2. CAYSTON [Suspect]
     Active Substance: AZTREONAM
     Indication: PRODUCT USED FOR UNKNOWN INDICATION
     Dosage: UNK
     Route: 065
     Dates: start: 20160725, end: 20160822
  3. ZERBAXA [Concomitant]
     Active Substance: CEFTOLOZANE SULFATE\TAZOBACTAM SODIUM
     Indication: PRODUCT USED FOR UNKNOWN INDICATION
     Dosage: 1.5 G, UNK (IV PIGGY BACK INFUSED OVER 3 HOURS EVERY 8 HOURS)
     Route: 042
     Dates: start: 20171217, end: 20171218
  4. ROCURONIUM [Concomitant]
     Active Substance: ROCURONIUM BROMIDE
     Indication: SEDATION
     Dosage: UNK
     Route: 065
     Dates: start: 20171213
  5. APRESOLINE HYDROCHLORIDE [Concomitant]
     Active Substance: HYDRALAZINE HYDROCHLORIDE
     Indication: PRODUCT USED FOR UNKNOWN INDICATION
     Dosage: (0.5-1 ML), Q6H
     Route: 065
  6. MINOCYCLINE [Concomitant]
     Active Substance: MINOCYCLINE HYDROCHLORIDE
     Indication: PRODUCT USED FOR UNKNOWN INDICATION
     Dosage: 100 MILLIGRAM, BID
     Route: 048
     Dates: start: 20180103, end: 20180107
  7. MIRALAX [Concomitant]
     Active Substance: POLYETHYLENE GLYCOL 3350
     Dosage: 17 GRAM
     Route: 048
     Dates: start: 20171215
  8. NORVASC [Concomitant]
     Active Substance: AMLODIPINE BESYLATE
     Indication: PRODUCT USED FOR UNKNOWN INDICATION
     Dosage: 5 MG, QD
     Route: 048
     Dates: start: 20170927, end: 20171128
  9. CALCARB [Concomitant]
     Indication: SUPPLEMENTATION THERAPY
     Dosage: 600 OT, BID
     Route: 048
     Dates: start: 20110613
  10. LANTUS [Concomitant]
     Active Substance: INSULIN GLARGINE
     Indication: BLOOD GLUCOSE DECREASED
     Dosage: UNK
     Route: 065
     Dates: start: 20180119
  11. HUMALOG [Concomitant]
     Active Substance: INSULIN LISPRO
     Dosage: (0-6 UNITS), QID
     Route: 058
  12. DUONEB [Concomitant]
     Active Substance: ALBUTEROL SULFATE\IPRATROPIUM BROMIDE
     Dosage: UNK
     Route: 065
     Dates: start: 20180102
  13. PULMICORT TURBUHALER [Concomitant]
     Active Substance: BUDESONIDE
     Dosage: 0.5 MILLIGRAM, BID
     Route: 055
     Dates: start: 20171212
  14. VERSED [Concomitant]
     Active Substance: MIDAZOLAM HYDROCHLORIDE
     Indication: SEDATION
     Dosage: 2 MILLIGRAM, HR
     Route: 042
     Dates: start: 20180124
  15. MICAFUNGIN. [Concomitant]
     Active Substance: MICAFUNGIN SODIUM
     Indication: FUNGAL INFECTION
  16. NAFCILLIN [Concomitant]
     Active Substance: NAFCILLIN SODIUM
     Indication: CYSTIC FIBROSIS
     Dosage: UNK
     Route: 065
     Dates: start: 20160701, end: 20160707
  17. FENTANYL. [Concomitant]
     Active Substance: FENTANYL
     Indication: PAIN
     Dosage: UNK
     Dates: start: 20180119, end: 20180125
  18. ZOFRAN [Concomitant]
     Active Substance: ONDANSETRON HYDROCHLORIDE
     Indication: NAUSEA
     Dosage: UNK
     Route: 065
     Dates: start: 20180116, end: 20180125
  19. TOBI PODHALER [Suspect]
     Active Substance: TOBRAMYCIN
     Indication: CYSTIC FIBROSIS
     Dosage: UNK
  20. VANCOMYCIN HCL USP [Suspect]
     Active Substance: VANCOMYCIN HYDROCHLORIDE
     Indication: PRODUCT USED FOR UNKNOWN INDICATION
     Dosage: 1250 MG, Q8H
     Route: 042
     Dates: start: 20171104, end: 20171106
  21. VORICONAZOLE. [Suspect]
     Active Substance: VORICONAZOLE
     Dosage: 300 MILLIGRAM, BID
     Route: 042
     Dates: start: 20171113
  22. OXYGEN. [Concomitant]
     Active Substance: OXYGEN
     Indication: INFECTIVE PULMONARY EXACERBATION OF CYSTIC FIBROSIS
     Dosage: UNK
     Route: 065
     Dates: start: 20150713, end: 20161001
  23. BACTRIM DS [Concomitant]
     Active Substance: SULFAMETHOXAZOLE\TRIMETHOPRIM
     Indication: COUGH
  24. ACTIGALL [Concomitant]
     Active Substance: URSODIOL
     Indication: CYSTIC FIBROSIS
     Dosage: 2 DOSAGE FORM, BID
     Route: 048
  25. ACTIGALL [Concomitant]
     Active Substance: URSODIOL
     Dosage: UNK
     Route: 065
     Dates: start: 20151015, end: 20171212
  26. PROBIOTIC                          /07343501/ [Concomitant]
     Active Substance: BIFIDOBACTERIUM LONGUM\LACTOBACILLUS ACIDOPHILUS
     Indication: PRODUCT USED FOR UNKNOWN INDICATION
     Dosage: 1 DOSAGE FORM, BID(WITH BREAKFAST AND DINNER)
     Route: 048
  27. L-METHYLFOLATE [Concomitant]
     Active Substance: LEVOMEFOLIC ACID
     Indication: PRODUCT USED FOR UNKNOWN INDICATION
     Dosage: 7.5 MILLIGRAM, QD
     Route: 048
  28. ATARAX [Concomitant]
     Active Substance: HYDROXYZINE HYDROCHLORIDE
     Indication: CYSTIC FIBROSIS
     Dosage: UNK
     Route: 065
     Dates: start: 20150921, end: 20171213
  29. MIRALAX [Concomitant]
     Active Substance: POLYETHYLENE GLYCOL 3350
     Indication: INFECTIVE PULMONARY EXACERBATION OF CYSTIC FIBROSIS
     Dosage: 850 MILLIGRAM, QD
     Route: 048
     Dates: start: 20161206
  30. ZITHROMAX [Concomitant]
     Active Substance: AZITHROMYCIN DIHYDRATE
     Indication: INFECTIVE PULMONARY EXACERBATION OF CYSTIC FIBROSIS
     Dosage: 250 MG, MWF
     Route: 048
     Dates: start: 20151001, end: 20171104
  31. PULMICORT TURBUHALER [Concomitant]
     Active Substance: BUDESONIDE
     Indication: INFECTIVE PULMONARY EXACERBATION OF CYSTIC FIBROSIS
     Dosage: UNK
     Route: 065
     Dates: start: 20160222, end: 20171212
  32. CIPRO [Concomitant]
     Active Substance: CIPROFLOXACIN HYDROCHLORIDE
     Dosage: UNK
     Route: 065
     Dates: start: 20160428, end: 20160507
  33. CIPRO [Concomitant]
     Active Substance: CIPROFLOXACIN HYDROCHLORIDE
     Dosage: 400 MILLIGRAM, TID
     Route: 042
     Dates: start: 20180121
  34. MUCOMYST [Concomitant]
     Active Substance: ACETYLCYSTEINE
     Indication: INFECTIVE PULMONARY EXACERBATION OF CYSTIC FIBROSIS
     Dosage: 2 MILLILITER
     Route: 055
     Dates: start: 20180124
  35. CHOLECALCIFEROL [Concomitant]
     Active Substance: CHOLECALCIFEROL
     Indication: VITAMIN D DEFICIENCY
     Dosage: (10,000 UNITS) , QD
     Route: 048
  36. DOXYCYCLINE. [Concomitant]
     Active Substance: DOXYCYCLINE
     Indication: INFECTIVE PULMONARY EXACERBATION OF CYSTIC FIBROSIS
     Dosage: 100 MILLIGRAM  (IV PIGGY BACK EVERY 12 HOURS)
     Route: 042
     Dates: start: 20180107
  37. TOBI PODHALER [Suspect]
     Active Substance: TOBRAMYCIN
     Indication: CYSTIC FIBROSIS
     Dosage: UNK
     Route: 055
     Dates: start: 20160223, end: 20160321
  38. VORICONAZOLE. [Suspect]
     Active Substance: VORICONAZOLE
     Indication: PRODUCT USED FOR UNKNOWN INDICATION
     Dosage: 450 MILLIGRAM, BID (EVERY 12 HOURS)
     Route: 042
     Dates: start: 20171104, end: 20171105
  39. CAYSTON [Suspect]
     Active Substance: AZTREONAM
     Dosage: UNK
     Route: 065
     Dates: start: 20161125, end: 20161223
  40. OXYGEN. [Concomitant]
     Active Substance: OXYGEN
     Dosage: UNK
     Route: 065
     Dates: start: 20161020, end: 20171108
  41. AQUADEKS                           /07679501/ [Concomitant]
     Active Substance: MINERALS\VITAMINS
     Indication: CYSTIC FIBROSIS
     Dosage: UNK
     Route: 065
     Dates: start: 20130726, end: 20170512
  42. HYPERTONIC SALINE SOLUTION [Concomitant]
     Active Substance: SODIUM CHLORIDE
     Indication: COUGH
     Dosage: 70 PERCENT, QD
     Route: 065
     Dates: start: 20170512, end: 20171104
  43. BACITRACIN. [Concomitant]
     Active Substance: BACITRACIN
     Indication: NASAL DISCOMFORT
     Dosage: UNK UNK, BID
     Route: 065
  44. ATARAX [Concomitant]
     Active Substance: HYDROXYZINE HYDROCHLORIDE
     Dosage: 1 DOSAGE FORM, TID
     Route: 048
  45. PULMOZYME [Concomitant]
     Active Substance: DORNASE ALFA
     Indication: INFECTIVE PULMONARY EXACERBATION OF CYSTIC FIBROSIS
     Dosage: 2.5 ML, QD
     Route: 055
     Dates: start: 20150708
  46. ALBUTEROL                          /00139501/ [Concomitant]
     Active Substance: ALBUTEROL
     Indication: WHEEZING
  47. LISPRO INSULIN [Concomitant]
     Active Substance: INSULIN LISPRO
     Indication: BLOOD GLUCOSE DECREASED
     Dosage: 18 U, UNK
     Route: 058
     Dates: start: 20171229
  48. LANTUS [Concomitant]
     Active Substance: INSULIN GLARGINE
     Dosage: 60 DOSAGE FORM
     Route: 058
     Dates: start: 20180124
  49. HUMALOG [Concomitant]
     Active Substance: INSULIN LISPRO
     Indication: BLOOD GLUCOSE DECREASED
     Dosage: 18 U, UNK
     Route: 058
     Dates: start: 20171229
  50. OMEPRAZOLE. [Concomitant]
     Active Substance: OMEPRAZOLE
     Dosage: UNK
     Route: 065
     Dates: start: 20180119, end: 20180119
  51. LEXAPRO [Concomitant]
     Active Substance: ESCITALOPRAM OXALATE
     Indication: AGITATION
     Dosage: UNK
     Route: 065
     Dates: start: 20160906, end: 20170504
  52. TOBI PODHALER [Suspect]
     Active Substance: TOBRAMYCIN
     Dosage: UNK
     Route: 055
     Dates: start: 20161028, end: 20161124
  53. TOBI PODHALER [Suspect]
     Active Substance: TOBRAMYCIN
     Dosage: 112 MG, TID ALTERNATE MONTHS
     Route: 055
     Dates: start: 20171128, end: 20171212
  54. CAYSTON [Suspect]
     Active Substance: AZTREONAM
     Dosage: 75 MG, TID ALTERNATE MONTHS
     Route: 065
     Dates: start: 20170918, end: 20171014
  55. PROPOFOL. [Concomitant]
     Active Substance: PROPOFOL
     Dosage: UNK
     Route: 065
     Dates: start: 20180119
  56. HUMALOG [Concomitant]
     Active Substance: INSULIN LISPRO
     Dosage: ONE UNIT FOR EVERY 50MG/DL
     Route: 058
  57. HUMALOG [Concomitant]
     Active Substance: INSULIN LISPRO
     Dosage: UNK
     Route: 065
     Dates: start: 20180106
  58. CIPRO [Concomitant]
     Active Substance: CIPROFLOXACIN HYDROCHLORIDE
     Dosage: UNK
     Route: 065
     Dates: start: 20160804, end: 20160813
  59. LOVENOX [Concomitant]
     Active Substance: ENOXAPARIN SODIUM
     Indication: PROPHYLAXIS
     Dosage: 40 MILLIGRAM, QD, (40 MG/0.4ML)
     Route: 042
     Dates: start: 20180123
  60. CLONIDINE. [Concomitant]
     Active Substance: CLONIDINE
     Indication: SEDATION
     Dosage: 0.3 MILLIGRAM
     Route: 048
     Dates: start: 20171221
  61. HEPARIN [Concomitant]
     Active Substance: HEPARIN SODIUM
     Indication: PROPHYLAXIS
     Dosage: UNK
     Route: 065
     Dates: start: 20180119, end: 20180125
  62. TOBI PODHALER [Suspect]
     Active Substance: TOBRAMYCIN
     Dosage: UNK
     Route: 055
     Dates: start: 20170219, end: 20170319
  63. BETHKIS [Suspect]
     Active Substance: TOBRAMYCIN
     Dosage: 300 MG, BID
     Route: 055
     Dates: start: 20171212, end: 20171219
  64. BETHKIS [Suspect]
     Active Substance: TOBRAMYCIN
     Dosage: 300 MG/4ML, BID
     Route: 055
     Dates: start: 20180106, end: 20180113
  65. SEREVENT DISKUS [Concomitant]
     Active Substance: SALMETEROL XINAFOATE
     Indication: INFECTIVE PULMONARY EXACERBATION OF CYSTIC FIBROSIS
     Dosage: 50 UG, BID
     Route: 055
     Dates: start: 20151015, end: 20171128
  66. FLONASE                            /00908302/ [Concomitant]
     Active Substance: MOMETASONE FUROATE
     Indication: CYSTIC FIBROSIS
     Dosage: UNK
     Route: 065
     Dates: start: 20151202, end: 20171215
  67. FLONASE                            /00908302/ [Concomitant]
     Active Substance: MOMETASONE FUROATE
     Dosage: 16 GRAM, HS (16 G (50UG), QHS)
     Route: 055
  68. TOBI [Concomitant]
     Active Substance: TOBRAMYCIN
     Indication: PRODUCT USED FOR UNKNOWN INDICATION
     Dosage: 300 MILLIGRAM, BID
     Route: 055
     Dates: start: 20171123, end: 20171220
  69. TOBI [Concomitant]
     Active Substance: TOBRAMYCIN
     Dosage: 300 MILLIGRAM, BID (SMALL VOLUME NEBULIZER)
     Route: 055
     Dates: start: 20180106, end: 20180113
  70. PULMOZYME [Concomitant]
     Active Substance: DORNASE ALFA
     Dosage: 2.5 MILLILITER, QD
     Route: 055
     Dates: start: 20171212
  71. ALBUTEROL                          /00139501/ [Concomitant]
     Active Substance: ALBUTEROL
     Indication: ASTHMA
     Dosage: 2.5 MILLIGRAM, PRN
     Route: 055
     Dates: start: 20170427, end: 20171104
  72. K-DUR [Concomitant]
     Active Substance: POTASSIUM CHLORIDE
     Indication: SUPPLEMENTATION THERAPY
     Dosage: 60 MG, FEEDING TUBE
     Route: 065
     Dates: start: 20180120
  73. SINEQUAN [Concomitant]
     Active Substance: DOXEPIN HYDROCHLORIDE
     Indication: AGITATION
     Dosage: UNK
     Route: 065
     Dates: start: 20150312, end: 20161006
  74. SODIUM CHLORIDE. [Concomitant]
     Active Substance: SODIUM CHLORIDE
     Indication: CYSTIC FIBROSIS
     Dosage: UNK
     Route: 065
     Dates: start: 20160218, end: 20180113
  75. TOBI PODHALER [Suspect]
     Active Substance: TOBRAMYCIN
     Dosage: UNK
     Route: 055
     Dates: start: 20160823, end: 20160920
  76. BETHKIS [Suspect]
     Active Substance: TOBRAMYCIN
     Indication: CYSTIC FIBROSIS
     Dosage: UNK
     Route: 065
     Dates: start: 20171123, end: 20171128
  77. LEVAQUIN [Concomitant]
     Active Substance: LEVOFLOXACIN
     Indication: COUGH
     Dosage: 750 MILLIGRAM, BID
     Route: 048
     Dates: start: 20171020, end: 20171108
  78. OXYGEN. [Concomitant]
     Active Substance: OXYGEN
     Dosage: 7 LITER
     Route: 045
     Dates: start: 201610, end: 20171104
  79. BACTRIM DS [Concomitant]
     Active Substance: SULFAMETHOXAZOLE\TRIMETHOPRIM
     Indication: BRONCHITIS
     Dosage: 800-160 MG, BID
     Route: 065
     Dates: start: 20170914, end: 20171104
  80. PRILOSEC [Concomitant]
     Active Substance: OMEPRAZOLE MAGNESIUM
     Indication: PRODUCT USED FOR UNKNOWN INDICATION
     Dosage: 20 MILLIGRAM, QD
     Route: 048
     Dates: start: 20160914, end: 20171104
  81. CREON [Concomitant]
     Active Substance: PANCRELIPASE AMYLASE\PANCRELIPASE LIPASE\PANCRELIPASE PROTEASE
     Dosage: UNK
     Route: 065
     Dates: start: 20151209, end: 20171222
  82. PROPOFOL. [Concomitant]
     Active Substance: PROPOFOL
     Indication: SEDATION
     Dosage: UNK
     Route: 065
     Dates: start: 20171213
  83. MULTIVITAMINS                      /00116001/ [Concomitant]
     Active Substance: VITAMINS
     Indication: PRODUCT USED FOR UNKNOWN INDICATION
     Dosage: 1 DOSAGE FORM, QD
     Route: 048
  84. MIRALAX [Concomitant]
     Active Substance: POLYETHYLENE GLYCOL 3350
     Indication: PRODUCT USED FOR UNKNOWN INDICATION
     Dosage: 1 DF, QD
     Route: 048
  85. TYLENOL [Concomitant]
     Active Substance: ACETAMINOPHEN
     Indication: PAIN
     Dosage: 1 DOSAGE FORM, Q4H
     Route: 054
  86. VITAMIIN C [Concomitant]
     Active Substance: ASCORBIC ACID
     Indication: NUTRITIONAL SUPPLEMENTATION
     Dosage: 1 DOSAGE FORM, QD
     Route: 048
     Dates: start: 20110613, end: 20171215
  87. ALBUTEROL                          /00139501/ [Concomitant]
     Active Substance: ALBUTEROL
     Indication: COUGH
  88. ZITHROMAX [Concomitant]
     Active Substance: AZITHROMYCIN DIHYDRATE
     Dosage: 500 MILLIGRAM, QOD (MONDAY, WEDNESDAY AND FRIDAY)
     Route: 048
     Dates: start: 20171229
  89. ZYPREXA [Concomitant]
     Active Substance: OLANZAPINE
     Indication: ATTENTION DEFICIT/HYPERACTIVITY DISORDER
     Dosage: 5 MILLIGRAM
     Route: 048
     Dates: start: 20180103
  90. CHOLECALCIFEROL [Concomitant]
     Active Substance: CHOLECALCIFEROL
     Indication: VITAMIN D DEFICIENCY
     Dosage: 25 DROPS
     Dates: start: 20171216
  91. URSODIOL. [Concomitant]
     Active Substance: URSODIOL
     Indication: INFECTIVE PULMONARY EXACERBATION OF CYSTIC FIBROSIS
     Dosage: 500 MILLIGRAM
     Route: 048
     Dates: start: 20171211
  92. CALCIUM CARBONATE. [Concomitant]
     Active Substance: CALCIUM CARBONATE
     Indication: SUPPLEMENTATION THERAPY
     Dosage: UNK
     Route: 065
     Dates: start: 20110613, end: 20171128
  93. OMEPRAZOLE. [Concomitant]
     Active Substance: OMEPRAZOLE
     Indication: CYSTIC FIBROSIS
     Dosage: UNK
     Route: 065
     Dates: start: 20140918, end: 20171128
  94. TOBI PODHALER [Suspect]
     Active Substance: TOBRAMYCIN
     Dosage: UNK
     Route: 055
     Dates: start: 20160420, end: 20160517
  95. TOBI PODHALER [Suspect]
     Active Substance: TOBRAMYCIN
     Dosage: UNK
     Route: 055
     Dates: start: 20170820, end: 20170916
  96. TOBI PODHALER [Suspect]
     Active Substance: TOBRAMYCIN
     Dosage: 112 MG, TID ALTERNATE MONTHS
     Route: 055
     Dates: start: 20171015, end: 20171104
  97. CAYSTON [Suspect]
     Active Substance: AZTREONAM
     Dosage: 75 MG, TID ALTERNATE MONTHS
     Route: 055
     Dates: start: 20180113, end: 20180121
  98. TYLENOL [Concomitant]
     Active Substance: ACETAMINOPHEN
     Indication: PAIN
     Dosage: 2 DOSAGE FORM, 2 DF (325 MG), UNK
     Route: 048
  99. KEFLEX [Concomitant]
     Active Substance: CEPHALEXIN
     Indication: PRODUCT USED FOR UNKNOWN INDICATION
     Dosage: UNK
     Route: 065
  100. ORKAMBI [Concomitant]
     Active Substance: IVACAFTOR\LUMACAFTOR
     Indication: INFECTIVE PULMONARY EXACERBATION OF CYSTIC FIBROSIS
     Dosage: 2 DOSAGE FORM, BID  (200-125 MG)
     Route: 065
     Dates: start: 201706, end: 20171104
  101. ALBUTEROL                          /00139501/ [Concomitant]
     Active Substance: ALBUTEROL
     Indication: CYSTIC FIBROSIS
  102. CEFTAZIDIME. [Concomitant]
     Active Substance: CEFTAZIDIME
     Indication: INFECTIVE PULMONARY EXACERBATION OF CYSTIC FIBROSIS
     Dosage: 4 G, UNK (PIGGY BACK INFUSED OVER 3 HOURS EVERY 8 HOURS)
     Route: 042
     Dates: start: 20180107
  103. CIPRO [Concomitant]
     Active Substance: CIPROFLOXACIN HYDROCHLORIDE
     Indication: INFECTIVE PULMONARY EXACERBATION OF CYSTIC FIBROSIS
     Dosage: UNK
     Route: 065
     Dates: start: 20160303, end: 20160313
  104. VERAPAMIL [Concomitant]
     Active Substance: VERAPAMIL HYDROCHLORIDE
     Indication: HYPERTENSION
     Dosage: 120 MILLIGRAM
     Route: 042
     Dates: start: 20171225
  105. QVAR [Concomitant]
     Active Substance: BECLOMETHASONE DIPROPIONATE
     Indication: CYSTIC FIBROSIS
     Dosage: UNK
     Route: 065
     Dates: start: 20151104, end: 20170803
  106. SODIUM CHLORIDE. [Concomitant]
     Active Substance: SODIUM CHLORIDE
     Dosage: UNK
     Route: 065
     Dates: start: 20180119, end: 20180119
  107. VORICONAZOLE. [Suspect]
     Active Substance: VORICONAZOLE
     Dosage: 300 MG, BID (EVERY 12 HOURS)
     Route: 042
     Dates: start: 20171105, end: 20171113
  108. CAYSTON [Suspect]
     Active Substance: AZTREONAM
     Dosage: UNK
     Route: 065
     Dates: start: 20170527, end: 20170630
  109. CAYSTON [Suspect]
     Active Substance: AZTREONAM
     Dosage: UNK
     Route: 065
     Dates: start: 20170722, end: 20170819
  110. DELTASONE                          /00016001/ [Concomitant]
     Active Substance: DEXAMETHASONE
     Indication: INFECTIVE PULMONARY EXACERBATION OF CYSTIC FIBROSIS
     Dosage: 5 MG, UNK
     Route: 048
     Dates: start: 20170927, end: 20171105
  111. CREON [Concomitant]
     Active Substance: PANCRELIPASE AMYLASE\PANCRELIPASE LIPASE\PANCRELIPASE PROTEASE
     Indication: CYSTIC FIBROSIS
     Dosage: UNK, TID (TAKE 5 TO 6 CAPSULE CAPSULES BY MOUTH 3 TIMES A DAY WITH MEALS AND 5 WITH SNACKS (AVE)
     Route: 048
     Dates: start: 20151209, end: 20160804
  112. Z-MAX [Concomitant]
     Indication: INFLAMMATION
     Dosage: 500 MILLIGRAM, 3XW
     Route: 048
  113. DUONEB [Concomitant]
     Active Substance: ALBUTEROL SULFATE\IPRATROPIUM BROMIDE
     Indication: INFECTIVE PULMONARY EXACERBATION OF CYSTIC FIBROSIS
     Dosage: 3 MILLILITER 3 ML (2.5 -0.5MG/3ML), UNK
     Route: 055
     Dates: start: 20171211
  114. DUONEB [Concomitant]
     Active Substance: ALBUTEROL SULFATE\IPRATROPIUM BROMIDE
     Dosage: 3 MILLILITER, Q8H (2.5-0.5 MG/3 ML)
     Route: 055
     Dates: start: 20180124
  115. CIPRO [Concomitant]
     Active Substance: CIPROFLOXACIN HYDROCHLORIDE
     Dosage: UNK
     Route: 065
     Dates: start: 20160520, end: 20160602
  116. MICAFUNGIN. [Concomitant]
     Active Substance: MICAFUNGIN SODIUM
     Indication: CYSTIC FIBROSIS
     Dosage: 100 MILLIGRAM, (IV PIGGY BACK DAILY)
     Route: 042
     Dates: start: 20180120
  117. DOXEPIN [Concomitant]
     Active Substance: DOXEPIN
     Indication: ATTENTION DEFICIT/HYPERACTIVITY DISORDER
     Dosage: 25 MILLIGRAM, BID
     Route: 048
     Dates: start: 20171221

REACTIONS (52)
  - Dyspnoea [Fatal]
  - Infective exacerbation of bronchiectasis [Recovered/Resolved]
  - Alkalosis hypochloraemic [Recovered/Resolved]
  - Iron deficiency [Recovered/Resolved]
  - Acidosis [Recovered/Resolved]
  - Cystic fibrosis [Fatal]
  - Hypercapnia [Recovered/Resolved]
  - Bandaemia [Unknown]
  - Respiratory failure [Recovered/Resolved]
  - Acute kidney injury [Recovered/Resolved]
  - Sepsis [Unknown]
  - Diarrhoea [Recovered/Resolved]
  - Haematuria [Recovered/Resolved]
  - Stenotrophomonas test positive [Unknown]
  - Thrombocytosis [Recovered/Resolved]
  - Gastrointestinal disorder [Fatal]
  - Bronchial haemorrhage [Recovered/Resolved]
  - Gastroenteritis norovirus [Recovered/Resolved]
  - Concomitant disease aggravated [Unknown]
  - Dysphagia [Recovered/Resolved]
  - Blood creatinine increased [Recovered/Resolved]
  - Granulocytosis [Unknown]
  - Glucose tolerance impaired [Recovered/Resolved]
  - Weight decreased [Recovered/Resolved]
  - Intensive care unit acquired weakness [Unknown]
  - Muscle atrophy [Unknown]
  - Hypervolaemia [Recovered/Resolved]
  - Metabolic acidosis [Recovered/Resolved]
  - Constipation [Recovered/Resolved]
  - Generalised oedema [Recovered/Resolved]
  - Blood urea increased [Unknown]
  - Haemoptysis [Unknown]
  - Insomnia [Recovered/Resolved]
  - Asthenia [Not Recovered/Not Resolved]
  - Acute respiratory distress syndrome [Fatal]
  - Fungal disease carrier [Unknown]
  - Hypertension [Recovered/Resolved]
  - Ill-defined disorder [Unknown]
  - Tachycardia [Unknown]
  - Infective pulmonary exacerbation of cystic fibrosis [Unknown]
  - Hypokalaemia [Recovered/Resolved]
  - Leukocytosis [Recovered/Resolved]
  - Bronchitis chronic [Fatal]
  - Pyrexia [Fatal]
  - Pneumonia [Recovered/Resolved]
  - Cough [Unknown]
  - Hypoxia [Recovered/Resolved]
  - Anaemia [Unknown]
  - Hypernatraemia [Recovered/Resolved]
  - Hypertriglyceridaemia [Recovered/Resolved]
  - Paresis [Recovered/Resolved]
  - Hyperglycaemia [Unknown]

NARRATIVE: CASE EVENT DATE: 20160303
